FAERS Safety Report 18219550 (Version 2)
Quarter: 2020Q3

REPORT INFORMATION
  Report Type: Spontaneous
  Country: US (occurrence: US)
  Receive Date: 20200901
  Receipt Date: 20200910
  Transmission Date: 20201103
  Serious: Yes (Death, Hospitalization, Other)
  Sender: FDA-Public Use
  Company Number: US-AMGEN-USASP2020138726

PATIENT
  Age: 49 Year
  Sex: Male

DRUGS (3)
  1. CINACALCET HCL [Suspect]
     Active Substance: CINACALCET HYDROCHLORIDE
     Indication: HYPERPARATHYROIDISM
     Dosage: 30 MILLIGRAM
     Route: 065
  2. SODIUM THIOSULFATE [Concomitant]
     Active Substance: SODIUM THIOSULFATE
     Dosage: 25 GRAM
  3. SEVELAMER CARBONATE. [Concomitant]
     Active Substance: SEVELAMER CARBONATE
     Dosage: 800 MILLIGRAM

REACTIONS (6)
  - Pneumoperitoneum [Unknown]
  - Multiple organ dysfunction syndrome [Fatal]
  - Calciphylaxis [Fatal]
  - Ascites [Unknown]
  - Intestinal pseudo-obstruction [Unknown]
  - Intestinal perforation [Fatal]
